FAERS Safety Report 8985138 (Version 1)
Quarter: 2012Q4

REPORT INFORMATION
  Report Type: 
  Country: US (occurrence: US)
  Receive Date: 20121224
  Receipt Date: 20121224
  Transmission Date: 20130627
  Serious: No
  Sender: FDA-Public Use
  Company Number: US-009507513-1212USA006434

PATIENT
  Age: 24 Year
  Sex: Female
  Weight: 59.86 kg

DRUGS (3)
  1. IMPLANON [Suspect]
     Indication: CONTRACEPTION
     Dosage: 1 DF, UNK
     Dates: start: 201201
  2. IMPLANON [Suspect]
     Dosage: 1 UNK, UNK
  3. VENLAFAXINE HYDROCHLORIDE [Concomitant]
     Dosage: UNK

REACTIONS (3)
  - Unintended pregnancy [Unknown]
  - Menorrhagia [Recovered/Resolved]
  - Hypomenorrhoea [Recovered/Resolved]
